FAERS Safety Report 4708222-7 (Version None)
Quarter: 2005Q3

REPORT INFORMATION
  Report Type: 
  Country: None (occurrence: None)
  Receive Date: 20050707
  Receipt Date: 20050629
  Transmission Date: 20060218
  Serious: Yes (Death, Hospitalization)
  Sender: FDA-Public Use
  Company Number: CA-JNJFOC-20050400649

PATIENT
  Sex: Male

DRUGS (5)
  1. DURAGESIC-100 [Suspect]
     Route: 062
  2. SEROQUEL [Concomitant]
  3. VALIUM [Concomitant]
  4. TYLENOL [Concomitant]
  5. TOPAMAX [Concomitant]
     Indication: MOOD SWINGS

REACTIONS (5)
  - INTENTIONAL MISUSE [None]
  - PULMONARY EMBOLISM [None]
  - SEPSIS [None]
  - SEPTIC EMBOLUS [None]
  - THERAPEUTIC RESPONSE DECREASED [None]
